FAERS Safety Report 6027182-2 (Version None)
Quarter: 2009Q1

REPORT INFORMATION
  Report Type: 
  Country: None (occurrence: None)
  Receive Date: 20090105
  Receipt Date: 20081226
  Transmission Date: 20090719
  Serious: Yes (Hospitalization)
  Sender: FDA-Public Use
  Company Number: IT-PFIZER INC-2008159716

PATIENT

DRUGS (1)
  1. SALAZOPYRIN [Suspect]
     Indication: REITER'S SYNDROME
     Route: 048
     Dates: start: 20081007, end: 20081119

REACTIONS (1)
  - PURE WHITE CELL APLASIA [None]
